FAERS Safety Report 24836572 (Version 1)
Quarter: 2025Q1

REPORT INFORMATION
  Report Type: Spontaneous
  Country: US (occurrence: US)
  Receive Date: 20250113
  Receipt Date: 20250113
  Transmission Date: 20250409
  Serious: Yes (Life-Threatening, Hospitalization)
  Sender: Unknown Manufacturer
  Company Number: US-MLMSERVICE-20241226-PI325852-00057-1

PATIENT
  Age: 63 Year
  Sex: Male

DRUGS (2)
  1. ATORVASTATIN [Suspect]
     Active Substance: ATORVASTATIN
     Indication: Product used for unknown indication
  2. BACTRIM [Concomitant]
     Active Substance: SULFAMETHOXAZOLE\TRIMETHOPRIM
     Indication: Cellulitis

REACTIONS (2)
  - Respiratory failure [Recovering/Resolving]
  - Necrotising myositis [Recovering/Resolving]
